FAERS Safety Report 20639859 (Version 2)
Quarter: 2022Q3

REPORT INFORMATION
  Report Type: Spontaneous
  Country: US (occurrence: US)
  Receive Date: 20220326
  Receipt Date: 20220713
  Transmission Date: 20221026
  Serious: No
  Sender: FDA-Public Use
  Company Number: US-SA-SAC20220317000977

PATIENT
  Sex: Female

DRUGS (1)
  1. DUPIXENT [Suspect]
     Active Substance: DUPILUMAB
     Indication: Asthma
     Dosage: 300 MG, QOW,DOSE OR AMOUNT: 300MG/2ML FREQUENCY: EVERY 2 WEEKS
     Route: 058
     Dates: start: 202011

REACTIONS (2)
  - Ocular hyperaemia [Unknown]
  - Conjunctivitis [Not Recovered/Not Resolved]
